FAERS Safety Report 15250888 (Version 1)
Quarter: 2018Q3

REPORT INFORMATION
  Report Type: Spontaneous
  Country: US (occurrence: US)
  Receive Date: 20180716
  Receipt Date: 20180716
  Transmission Date: 20181010
  Serious: Yes (Disabling)
  Sender: FDA-Public Use
  Company Number: None

PATIENT
  Age: 54 Year
  Sex: Female
  Weight: 56.25 kg

DRUGS (2)
  1. CENTRUM MULTIVITAMINS [Concomitant]
     Active Substance: VITAMINS
  2. RESTASIS [Suspect]
     Active Substance: CYCLOSPORINE
     Indication: KERATOMILEUSIS
     Dosage: ?          QUANTITY:1 INDIVIDUAL USEVIAL;?
     Route: 047
     Dates: start: 20110731

REACTIONS (1)
  - Vertigo [None]

NARRATIVE: CASE EVENT DATE: 20110818
